FAERS Safety Report 8042416-0 (Version None)
Quarter: 2012Q1

REPORT INFORMATION
  Report Type: 
  Country: None (occurrence: None)
  Receive Date: 20120112
  Receipt Date: 20120105
  Transmission Date: 20120608
  Serious: Yes (Other)
  Sender: FDA-Public Use
  Company Number: US-SANOFI-AVENTIS-2011SA070030

PATIENT
  Sex: Male
  Weight: 77 kg

DRUGS (7)
  1. FUROSEMIDE [Concomitant]
  2. LANTUS [Suspect]
     Dosage: DOSE:23 UNIT(S)
     Route: 058
     Dates: start: 20101201
  3. LANTUS [Suspect]
     Dosage: DOSE:22 UNIT(S)
     Route: 058
  4. LANTUS [Suspect]
     Dosage: DOSE:25 UNIT(S)
     Route: 058
  5. METOPROLOL [Concomitant]
  6. SOLOSTAR [Suspect]
     Dates: start: 20100101
  7. ACCUPRIL [Concomitant]

REACTIONS (4)
  - DRUG INEFFECTIVE [None]
  - HISTOPLASMOSIS [None]
  - PRODUCT QUALITY ISSUE [None]
  - BLOOD GLUCOSE INCREASED [None]
